FAERS Safety Report 4973883-4 (Version None)
Quarter: 2006Q2

REPORT INFORMATION
  Report Type: 
  Country: None (occurrence: None)
  Receive Date: 20060410
  Receipt Date: 20060329
  Transmission Date: 20061013
  Serious: Yes (Other)
  Sender: FDA-Public Use
  Company Number: 200611090BCC

PATIENT
  Sex: Male

DRUGS (1)
  1. NAPROXEN [Suspect]
     Dosage: ORAL
     Route: 048

REACTIONS (13)
  - ABSCESS [None]
  - DIVERTICULAR FISTULA [None]
  - FISTULA [None]
  - GASTRIC DISORDER [None]
  - HAEMATOMA [None]
  - INFECTION [None]
  - LARGE INTESTINE PERFORATION [None]
  - NEPHROLITHIASIS [None]
  - NIGHT SWEATS [None]
  - POST PROCEDURAL COMPLICATION [None]
  - RECTAL HAEMORRHAGE [None]
  - RENAL CYST [None]
  - SCAR [None]
